FAERS Safety Report 22611717 (Version 5)
Quarter: 2024Q2

REPORT INFORMATION
  Report Type: Spontaneous
  Country: US (occurrence: US)
  Receive Date: 20230616
  Receipt Date: 20240424
  Transmission Date: 20240715
  Serious: No
  Sender: FDA-Public Use
  Company Number: US-002147023-NVSC2023US137122

PATIENT
  Sex: Female

DRUGS (1)
  1. XIIDRA [Suspect]
     Active Substance: LIFITEGRAST
     Indication: Product used for unknown indication
     Dosage: 5 %, BID
     Route: 047
     Dates: start: 20230309

REACTIONS (8)
  - Vision blurred [Unknown]
  - Condition aggravated [Unknown]
  - Visual impairment [Unknown]
  - Eye inflammation [Unknown]
  - Eye swelling [Unknown]
  - Ocular hyperaemia [Unknown]
  - Drug intolerance [Unknown]
  - Eye irritation [Unknown]
